FAERS Safety Report 4455183-4 (Version None)
Quarter: 2004Q3

REPORT INFORMATION
  Report Type: 
  Country: None (occurrence: None)
  Receive Date: 20040917
  Receipt Date: 20040908
  Transmission Date: 20050211
  Serious: Yes (Hospitalization)
  Sender: FDA-Public Use
  Company Number: B0344728A

PATIENT
  Age: 4 Year
  Sex: Female

DRUGS (12)
  1. AMOXIL [Suspect]
  2. SEPTRA [Suspect]
  3. PREDNISONE [Concomitant]
  4. VINCRISTINE [Concomitant]
  5. COLASPASE [Concomitant]
  6. CYTARABINE [Concomitant]
  7. METHOTREXATE [Concomitant]
  8. VINCRISTINE [Concomitant]
  9. THIOGUANINE [Concomitant]
  10. MERCAPTOPURINE [Concomitant]
  11. DOXORUBICIN [Concomitant]
  12. COLASPASE [Concomitant]

REACTIONS (2)
  - CLOSTRIDIUM COLITIS [None]
  - OTITIS MEDIA [None]
